FAERS Safety Report 20937876 (Version 4)
Quarter: 2022Q4

REPORT INFORMATION
  Report Type: Spontaneous
  Country: JP (occurrence: JP)
  Receive Date: 20220609
  Receipt Date: 20221006
  Transmission Date: 20230113
  Serious: Yes (Hospitalization, Other)
  Sender: FDA-Public Use
  Company Number: JP-teijin-202201015_FET_P_1

PATIENT
  Age: 77 Year
  Sex: Female

DRUGS (18)
  1. FEBUXOSTAT [Interacting]
     Active Substance: FEBUXOSTAT
     Indication: Hyperuricaemia
     Dosage: 20 MILLIGRAM, QD
     Route: 048
     Dates: start: 20201128, end: 20210318
  2. AZATHIOPRINE [Interacting]
     Active Substance: AZATHIOPRINE
     Indication: Giant cell arteritis
     Dosage: 100 MILLIGRAM, QD
     Route: 048
     Dates: start: 201912, end: 20210318
  3. PREDONINE [Concomitant]
     Active Substance: PREDNISOLONE
     Indication: Giant cell arteritis
     Dosage: 7.5 MILLIGRAM, QD
     Route: 048
     Dates: start: 201912
  4. AMLODIPINE [Concomitant]
     Active Substance: AMLODIPINE BESYLATE
     Dosage: 5 MILLIGRAM, QD
     Route: 048
     Dates: end: 20210318
  5. LOXOPROFEN SODIUM [Concomitant]
     Active Substance: LOXOPROFEN SODIUM
     Dosage: 100 MILLIGRAM, QD
     Route: 061
     Dates: end: 20210318
  6. MELOXICAM [Concomitant]
     Active Substance: MELOXICAM
     Dosage: 10 MILLIGRAM, QD
     Route: 048
     Dates: end: 20210318
  7. ASPIRIN\LANSOPRAZOLE [Concomitant]
     Active Substance: ASPIRIN\LANSOPRAZOLE
     Dosage: 1 DOSAGE FORM, QD
     Route: 048
     Dates: end: 20210318
  8. VADADUSTAT [Concomitant]
     Active Substance: VADADUSTAT
     Dosage: 300 MILLIGRAM, QD
     Route: 048
     Dates: end: 20210318
  9. SODIUM PICOSULFATE [Concomitant]
     Active Substance: SODIUM PICOSULFATE
     Dosage: 5 MILLIGRAM, QD
     Route: 048
     Dates: end: 20210318
  10. PYRIDOXAL [Concomitant]
     Active Substance: PYRIDOXAL
     Dosage: 90 MILLIGRAM, TID
     Route: 048
     Dates: end: 20210318
  11. RIBOFLAVIN TETRABUTYRATE [Concomitant]
     Dosage: 60 MILLIGRAM, TID
     Route: 048
     Dates: end: 20210318
  12. DEXAMETHASONE [Concomitant]
     Active Substance: DEXAMETHASONE
     Dosage: UNK UNK, QD
     Dates: end: 20210318
  13. LOXOPROFEN SODIUM [Concomitant]
     Active Substance: LOXOPROFEN SODIUM
     Indication: Stomatitis
     Dosage: 60 MILLIGRAM
     Route: 048
     Dates: end: 20210318
  14. AZOSEMIDE [Concomitant]
     Active Substance: AZOSEMIDE
     Dosage: 30 MILLIGRAM, QD
     Route: 048
  15. SPIRONOLACTONE [Concomitant]
     Active Substance: SPIRONOLACTONE
     Dosage: 25 MILLIGRAM, QD
     Route: 048
  16. CARVEDILOL [Concomitant]
     Active Substance: CARVEDILOL
     Dosage: 7.5 MILLIGRAM, BID
     Route: 048
  17. ROSUVASTATIN [Concomitant]
     Active Substance: ROSUVASTATIN
     Dosage: 5 MILLIGRAM, QD
     Route: 048
  18. ISOSORBIDE DINITRATE [Concomitant]
     Active Substance: ISOSORBIDE DINITRATE
     Dosage: 40 MILLIGRAM, QD
     Route: 061

REACTIONS (3)
  - Drug interaction [Recovered/Resolved]
  - Pancytopenia [Recovered/Resolved]
  - Labelled drug-drug interaction issue [Unknown]

NARRATIVE: CASE EVENT DATE: 20210125
